FAERS Safety Report 16747743 (Version 3)
Quarter: 2019Q4

REPORT INFORMATION
  Report Type: Spontaneous
  Country: US (occurrence: US)
  Receive Date: 20190827
  Receipt Date: 20191203
  Transmission Date: 20200122
  Serious: Yes (Hospitalization)
  Sender: FDA-Public Use
  Company Number: US-PFIZER INC-2019363328

PATIENT
  Age: 36 Year
  Sex: Female
  Weight: 113.38 kg

DRUGS (3)
  1. RELPAX [Suspect]
     Active Substance: ELETRIPTAN HYDROBROMIDE
     Dosage: UNK
  2. RELPAX [Suspect]
     Active Substance: ELETRIPTAN HYDROBROMIDE
     Dosage: 40 MG, UNK (1 ON ONSET OF 40 MG MIGRAINE)
     Dates: start: 2013
  3. RELPAX [Suspect]
     Active Substance: ELETRIPTAN HYDROBROMIDE
     Indication: MIGRAINE
     Dosage: 40 MG, UNK

REACTIONS (9)
  - Malaise [Recovered/Resolved]
  - White blood cell count abnormal [Not Recovered/Not Resolved]
  - Dysphonia [Unknown]
  - White blood cell count decreased [Unknown]
  - Recalled product administered [Recovered/Resolved]
  - Nasopharyngitis [Recovered/Resolved]
  - Abdominal pain [Unknown]
  - Sinusitis [Recovered/Resolved]
  - Influenza [Recovered/Resolved]

NARRATIVE: CASE EVENT DATE: 201908
